FAERS Safety Report 6611389-7 (Version None)
Quarter: 2010Q1

REPORT INFORMATION
  Report Type: 
  Country: None (occurrence: None)
  Receive Date: 20100301
  Receipt Date: 20100301
  Transmission Date: 20100710
  Serious: Yes (Hospitalization, Disabling)
  Sender: FDA-Public Use
  Company Number: None

PATIENT
  Age: 73 Year
  Sex: Male
  Weight: 89.09 kg

DRUGS (1)
  1. GABAPENTIN [Suspect]
     Dates: start: 20100115, end: 20100115

REACTIONS (5)
  - DIZZINESS [None]
  - FALL [None]
  - NAUSEA [None]
  - RIB FRACTURE [None]
  - VOMITING [None]
